FAERS Safety Report 9804230 (Version 3)
Quarter: 2014Q1

REPORT INFORMATION
  Report Type: Report from Study
  Country: US (occurrence: US)
  Receive Date: 20140108
  Receipt Date: 20140218
  Transmission Date: 20141002
  Serious: Yes (Death, Hospitalization)
  Sender: FDA-Public Use
  Company Number: US-ACTELION-A-US2013-93063

PATIENT
  Age: 79 Year
  Sex: Female

DRUGS (2)
  1. MACITENTAN [Suspect]
     Indication: PULMONARY ARTERIAL HYPERTENSION
     Dosage: 1 UNK, UNK
     Route: 048
     Dates: start: 201312, end: 20131221
  2. ADCIRCA [Concomitant]
     Dosage: 40 MG, UNK

REACTIONS (4)
  - Renal failure [Fatal]
  - Pulmonary arterial hypertension [Fatal]
  - Condition aggravated [Fatal]
  - Dyspnoea exertional [Unknown]
